FAERS Safety Report 14337976 (Version 1)
Quarter: 2017Q4

REPORT INFORMATION
  Report Type: Spontaneous
  Country: FR (occurrence: FR)
  Receive Date: 20171229
  Receipt Date: 20171229
  Transmission Date: 20180321
  Serious: Yes (Other)
  Sender: FDA-Public Use
  Company Number: FR-CANTON LABORATORIES, LLC-2038023

PATIENT
  Age: 31 Year
  Sex: Female
  Weight: 78 kg

DRUGS (4)
  1. NAPROSYN [Suspect]
     Active Substance: NAPROXEN
     Indication: PSORIATIC ARTHROPATHY
     Route: 065
     Dates: start: 2016
  2. TRAMADOL. [Suspect]
     Active Substance: TRAMADOL
     Route: 048
     Dates: start: 2016
  3. STELARA [Suspect]
     Active Substance: USTEKINUMAB
     Route: 058
     Dates: start: 201606
  4. DISPOSITIF MEDICAL [Suspect]
     Active Substance: DEVICE
     Route: 015

REACTIONS (5)
  - Device ineffective [Recovered/Resolved with Sequelae]
  - Off label use [Unknown]
  - Inappropriate schedule of drug administration [Unknown]
  - Exposure during pregnancy [Recovered/Resolved with Sequelae]
  - Pregnancy [Recovered/Resolved with Sequelae]

NARRATIVE: CASE EVENT DATE: 201606
